FAERS Safety Report 24052615 (Version 1)
Quarter: 2024Q3

REPORT INFORMATION
  Report Type: Spontaneous
  Country: ES (occurrence: ES)
  Receive Date: 20240705
  Receipt Date: 20240705
  Transmission Date: 20241016
  Serious: Yes (Death, Hospitalization)
  Sender: AUROBINDO
  Company Number: ES-AUROBINDO-AUR-APL-2018-019593

PATIENT
  Age: 59 Year
  Sex: Female

DRUGS (27)
  1. FENTANYL [Suspect]
     Active Substance: FENTANYL\FENTANYL CITRATE
     Indication: Breakthrough pain
     Dosage: 2 SUBLINGUAL FENTANYL RESCUE/ DAY ()
     Route: 060
  2. FENTANYL [Suspect]
     Active Substance: FENTANYL\FENTANYL CITRATE
     Indication: Pain
     Dosage: 100 MCG, AT REQUESTED
     Route: 062
  3. FENTANYL [Suspect]
     Active Substance: FENTANYL\FENTANYL CITRATE
     Dosage: 200 UG, RESCUE
     Route: 060
  4. FENTANYL [Suspect]
     Active Substance: FENTANYL\FENTANYL CITRATE
     Dosage: 400 UG, UNK
     Route: 060
  5. FENTANYL [Suspect]
     Active Substance: FENTANYL\FENTANYL CITRATE
     Dosage: 300 UG, RESCUE
     Route: 060
  6. FENTANYL [Suspect]
     Active Substance: FENTANYL\FENTANYL CITRATE
     Dosage: 6 SUBLINGUAL FENTANYL RESCUES AT NIGHT ()
     Route: 060
  7. FENTANYL [Suspect]
     Active Substance: FENTANYL\FENTANYL CITRATE
     Dosage: 150 MCG, DAILY
     Route: 062
  8. FENTANYL [Suspect]
     Active Substance: FENTANYL\FENTANYL CITRATE
     Dosage: 100 MCG, AT REQUESTED
     Route: 060
  9. FENTANYL [Suspect]
     Active Substance: FENTANYL\FENTANYL CITRATE
     Dosage: 50 MCG/72H
     Route: 062
  10. PREGABALIN [Suspect]
     Active Substance: PREGABALIN
     Indication: Product used for unknown indication
     Dosage: 75 MILLIGRAM, 3 TIMES A DAY
     Route: 065
  11. PREGABALIN [Suspect]
     Active Substance: PREGABALIN
     Indication: Analgesic therapy
     Dosage: 25 MILLIGRAM, ONCE A DAY
     Route: 065
  12. TAPENTADOL [Suspect]
     Active Substance: TAPENTADOL
     Indication: Analgesic therapy
     Dosage: 25 MILLIGRAM, ONCE A DAY
     Route: 065
  13. TAPENTADOL [Suspect]
     Active Substance: TAPENTADOL
     Dosage: UNKNOWN ()
     Route: 065
  14. LIDOCAINE [Suspect]
     Active Substance: LIDOCAINE
     Indication: Analgesic therapy
     Dosage: 1 DOSAGE FORM, TWO TIMES A DAY
     Route: 061
  15. LIDOCAINE [Suspect]
     Active Substance: LIDOCAINE
     Dosage: 1 DOSAGE FORM, FOUR TIMES/DAY
     Route: 061
  16. OXYCODONE [Suspect]
     Active Substance: OXYCODONE
     Indication: Analgesic therapy
     Dosage: 40 MILLIGRAM, TWO TIMES A DAY
     Route: 065
  17. NALOXONE HYDROCHLORIDE\OXYCODONE HYDROCHLORIDE [Suspect]
     Active Substance: NALOXONE HYDROCHLORIDE\OXYCODONE HYDROCHLORIDE
     Indication: Analgesic therapy
     Dosage: 1 DOSAGE FORM, TWO TIMES A DAY
     Route: 065
  18. AMITRIPTYLINE HYDROCHLORIDE [Suspect]
     Active Substance: AMITRIPTYLINE HYDROCHLORIDE
     Indication: Analgesic therapy
     Dosage: 10 MILLIGRAM, ONCE A DAY
     Route: 065
  19. FENTANYL [Suspect]
     Active Substance: FENTANYL\FENTANYL CITRATE
     Indication: Breakthrough pain
     Dosage: 400 MICROGRAM, AS NECESSARY
     Route: 060
  20. FENTANYL [Suspect]
     Active Substance: FENTANYL\FENTANYL CITRATE
     Dosage: 100 MICROGRAM, AS NECESSARY
     Route: 060
  21. FENTANYL [Suspect]
     Active Substance: FENTANYL\FENTANYL CITRATE
     Dosage: 300 MICROGRAM, AS NECESSARY
     Route: 060
  22. FENTANYL [Suspect]
     Active Substance: FENTANYL\FENTANYL CITRATE
     Dosage: 2 DOSAGE FORM, ONCE A DAY
     Route: 060
  23. FENTANYL [Suspect]
     Active Substance: FENTANYL\FENTANYL CITRATE
     Dosage: 200 MICROGRAM, AS NECESSARY
     Route: 060
  24. FENTANYL [Suspect]
     Active Substance: FENTANYL\FENTANYL CITRATE
     Dosage: 6 DOSAGE FORM, ONCE A DAY
     Route: 060
  25. ERLOTINIB [Concomitant]
     Active Substance: ERLOTINIB
     Indication: EGFR gene mutation
     Dosage: 150 MG, DAILY
     Route: 065
  26. DEXAMETHASONE [Concomitant]
     Active Substance: DEXAMETHASONE
     Indication: Pain
     Dosage: 4 MILLIGRAM, TWO TIMES A DAY
     Route: 065
  27. ZOMETA [Concomitant]
     Active Substance: ZOLEDRONIC ACID
     Indication: EGFR gene mutation
     Dosage: 4 MG, MONTHLY
     Route: 065

REACTIONS (8)
  - Disease progression [Fatal]
  - Decreased appetite [Recovered/Resolved]
  - Insomnia [Recovered/Resolved]
  - Nausea [Recovered/Resolved]
  - Malaise [Recovered/Resolved]
  - Night sweats [Recovered/Resolved]
  - Inappropriate schedule of product administration [Unknown]
  - Rash [Unknown]
